FAERS Safety Report 26176393 (Version 1)
Quarter: 2025Q4

REPORT INFORMATION
  Report Type: Spontaneous
  Country: AU (occurrence: AU)
  Receive Date: 20251218
  Receipt Date: 20251218
  Transmission Date: 20260118
  Serious: Yes (Other)
  Sender: ELI LILLY AND COMPANY
  Company Number: AU-Merck Healthcare KGaA-2025046113

PATIENT
  Sex: Male

DRUGS (1)
  1. ERBITUX [Suspect]
     Active Substance: CETUXIMAB
     Indication: Skin squamous cell carcinoma metastatic
     Dosage: 800 MG, UNKNOWN
     Route: 042
     Dates: start: 20250827

REACTIONS (2)
  - Skin toxicity [Unknown]
  - Off label use [Unknown]
